FAERS Safety Report 15520153 (Version 2)
Quarter: 2018Q4

REPORT INFORMATION
  Report Type: Report from Study
  Country: CO (occurrence: CO)
  Receive Date: 20181017
  Receipt Date: 20181116
  Transmission Date: 20190205
  Serious: Yes (Other)
  Sender: FDA-Public Use
  Company Number: PHHY2018CO003915

PATIENT
  Age: 60 Year
  Sex: Female
  Weight: 54 kg

DRUGS (7)
  1. XOLAIR [Suspect]
     Active Substance: OMALIZUMAB
     Dosage: 300 MG, QMO
     Route: 058
     Dates: end: 20171206
  2. IPRATROPIUM BROMIDE. [Concomitant]
     Active Substance: IPRATROPIUM BROMIDE
     Indication: PRODUCT USED FOR UNKNOWN INDICATION
     Route: 065
  3. BECLOMETHASONE [Concomitant]
     Active Substance: BECLOMETHASONE
     Indication: PRODUCT USED FOR UNKNOWN INDICATION
     Route: 048
  4. IBUPROFEN. [Suspect]
     Active Substance: IBUPROFEN
     Indication: PRODUCT USED FOR UNKNOWN INDICATION
     Route: 065
  5. XOLAIR [Suspect]
     Active Substance: OMALIZUMAB
     Indication: ASTHMA
     Dosage: 300 MG, QMO
     Route: 058
     Dates: start: 20160101
  6. SALBUTAMOL [Concomitant]
     Active Substance: ALBUTEROL
     Indication: PRODUCT USED FOR UNKNOWN INDICATION
     Route: 065
  7. AEROVIAL [Concomitant]
     Indication: PRODUCT USED FOR UNKNOWN INDICATION
     Route: 065

REACTIONS (20)
  - Dengue fever [Recovering/Resolving]
  - Viral infection [Unknown]
  - Facial bones fracture [Recovering/Resolving]
  - Fall [Recovering/Resolving]
  - Influenza [Recovering/Resolving]
  - Swelling [Recovering/Resolving]
  - Productive cough [Recovering/Resolving]
  - Blood cholesterol increased [Recovering/Resolving]
  - Osteoarthritis [Recovering/Resolving]
  - Depressed mood [Unknown]
  - Blood pressure increased [Recovering/Resolving]
  - Injection site pain [Recovering/Resolving]
  - Chronic obstructive pulmonary disease [Recovering/Resolving]
  - Constipation [Recovering/Resolving]
  - Drug hypersensitivity [Recovering/Resolving]
  - Respiratory tract congestion [Recovering/Resolving]
  - Thyroid function test abnormal [Recovering/Resolving]
  - Bone pain [Unknown]
  - Headache [Unknown]
  - Chest discomfort [Recovering/Resolving]

NARRATIVE: CASE EVENT DATE: 201705
